FAERS Safety Report 5787953-4 (Version None)
Quarter: 2008Q2

REPORT INFORMATION
  Report Type: 
  Country: None (occurrence: None)
  Receive Date: 20080625
  Receipt Date: 20080519
  Transmission Date: 20081010
  Serious: Yes (Other)
  Sender: FDA-Public Use
  Company Number: B0526359A

PATIENT
  Sex: Female

DRUGS (2)
  1. AVANDAMET [Suspect]
     Route: 048
     Dates: start: 20070101
  2. DIAMICRON [Concomitant]
     Route: 048

REACTIONS (3)
  - CATARACT [None]
  - OFF LABEL USE [None]
  - VISUAL ACUITY REDUCED [None]
